FAERS Safety Report 21864702 (Version 1)
Quarter: 2023Q1

REPORT INFORMATION
  Report Type: Spontaneous
  Country: US (occurrence: US)
  Receive Date: 20230116
  Receipt Date: 20230116
  Transmission Date: 20230418
  Serious: No
  Sender: FDA-Public Use
  Company Number: US-drreddys-SPO/USA/22/0159251

PATIENT
  Age: 15 Year
  Sex: Male

DRUGS (2)
  1. ACCUTANE [Suspect]
     Active Substance: ISOTRETINOIN
     Indication: Acne
     Dosage: RMA ISSUE DATE: 10 JUNE 2022 09:55:04 AM, 04 AUGUST 2022 05:00:10 PM, 13 SEPTEMBER 2022 08:18:39 AM,
  2. ACCUTANE [Suspect]
     Active Substance: ISOTRETINOIN
     Dosage: RMA ISSUE DATE: 11 MAY 2022 04:10:18 PM, 07 JULY 2022 03:51:30 PM, 04 AUGUST 2022 05:00:10 PM, 13 SE

REACTIONS (1)
  - Therapy partial responder [Unknown]
